FAERS Safety Report 9168830 (Version 1)
Quarter: 2013Q1

REPORT INFORMATION
  Report Type: Spontaneous
  Country: US (occurrence: None)
  Receive Date: 20130314
  Receipt Date: 20130314
  Transmission Date: 20140127
  Serious: Yes (Hospitalization)
  Sender: FDA-Public Use
  Company Number: None

PATIENT
  Age: 57 Year
  Sex: Male
  Weight: 66.3 kg

DRUGS (2)
  1. ALIMTA [Suspect]
     Indication: PROSTATE CANCER METASTATIC
     Dosage: DAY 1 AND 15
     Route: 042
     Dates: start: 20130219, end: 20130306
  2. TAXOTERE [Suspect]
     Dosage: DAY 1 AND 15
     Route: 042
     Dates: start: 20130219, end: 20130306

REACTIONS (2)
  - Pyrexia [None]
  - Tachycardia [None]
